FAERS Safety Report 10171546 (Version 1)
Quarter: 2014Q2

REPORT INFORMATION
  Report Type: Spontaneous
  Country: US (occurrence: None)
  Receive Date: 20140513
  Receipt Date: 20140513
  Transmission Date: 20141212
  Serious: Yes (Hospitalization)
  Sender: FDA-Public Use
  Company Number: DL2014-0388

PATIENT
  Age: 26 Year
  Sex: Female

DRUGS (3)
  1. MIFEPRISTONE TABLETS, 200 MG (DANCO LABS) [Suspect]
     Indication: ABORTION INDUCED
     Route: 048
     Dates: start: 20140430
  2. MISOPROSTOL TABLETS, 200 MCG [Suspect]
     Route: 002
     Dates: start: 20140501
  3. DOXYCYCLINE [Concomitant]

REACTIONS (4)
  - Back pain [None]
  - Tachycardia [None]
  - Pain [None]
  - Haemorrhage [None]
